FAERS Safety Report 18150812 (Version 2)
Quarter: 2020Q4

REPORT INFORMATION
  Report Type: Spontaneous
  Country: SI (occurrence: SI)
  Receive Date: 20200814
  Receipt Date: 20201102
  Transmission Date: 20210113
  Serious: Yes (Other)
  Sender: FDA-Public Use
  Company Number: SI-GLAXOSMITHKLINE-SI2020159850

PATIENT
  Age: 31 Year
  Sex: Female

DRUGS (3)
  1. SEPTRIN [Concomitant]
     Active Substance: SULFAMETHOXAZOLE\TRIMETHOPRIM
     Indication: PRODUCT USED FOR UNKNOWN INDICATION
     Dosage: 5 MG PRN
     Route: 065
  2. SPASMEX (TROSPIUM CHLORIDE) [Concomitant]
     Active Substance: TROSPIUM CHLORIDE
     Indication: PRODUCT USED FOR UNKNOWN INDICATION
     Dosage: 5 MG PRN
     Route: 065
  3. LAMICTAL [Suspect]
     Active Substance: LAMOTRIGINE
     Indication: EPILEPSY
     Dosage: 25 MG ACCORDING TO THE SCHEME
     Route: 048
     Dates: start: 20190523, end: 20200724

REACTIONS (4)
  - Epilepsy [Recovering/Resolving]
  - Vertigo [Unknown]
  - Gait disturbance [Unknown]
  - Movement disorder [Unknown]

NARRATIVE: CASE EVENT DATE: 20200505
